FAERS Safety Report 16554784 (Version 1)
Quarter: 2019Q3

REPORT INFORMATION
  Report Type: Report from Study
  Country: None (occurrence: KW)
  Receive Date: 20190710
  Receipt Date: 20190710
  Transmission Date: 20191004
  Serious: Yes (Hospitalization)
  Sender: FDA-Public Use
  Company Number: KW-ABBVIE-19K-091-2846910-00

PATIENT
  Age: 74 Year
  Sex: Female

DRUGS (1)
  1. HUMIRA [Suspect]
     Active Substance: ADALIMUMAB
     Indication: CROHN^S DISEASE
     Route: 058
     Dates: start: 2014, end: 20190610

REACTIONS (4)
  - Malaise [Unknown]
  - Drug intolerance [Unknown]
  - Urinary tract infection [Not Recovered/Not Resolved]
  - Immunosuppression [Unknown]

NARRATIVE: CASE EVENT DATE: 20190701
